FAERS Safety Report 7525505-6 (Version None)
Quarter: 2011Q2

REPORT INFORMATION
  Report Type: 
  Country: None (occurrence: None)
  Receive Date: 20110602
  Receipt Date: 20110602
  Transmission Date: 20111010
  Serious: No
  Sender: FDA-Public Use
  Company Number: None

PATIENT
  Age: 79 Year
  Sex: Male
  Weight: 94.3482 kg

DRUGS (1)
  1. COUMADIN [Suspect]
     Dosage: 5MG 1/DAY
     Dates: start: 20110201, end: 20110501

REACTIONS (2)
  - POOR QUALITY DRUG ADMINISTERED [None]
  - PRODUCT MEASURED POTENCY ISSUE [None]
